FAERS Safety Report 26112104 (Version 1)
Quarter: 2025Q4

REPORT INFORMATION
  Report Type: Spontaneous
  Country: US (occurrence: None)
  Receive Date: 20251201
  Receipt Date: 20251201
  Transmission Date: 20260119
  Serious: Yes (Death)
  Sender: FDA-CTU
  Company Number: None

PATIENT
  Age: 80 Year
  Sex: Male
  Weight: 61 kg

DRUGS (12)
  1. TACROLIMUS [Suspect]
     Active Substance: TACROLIMUS
     Indication: Renal transplant
     Dosage: 0.5M MG  3 C APS QAM AND 2 CAPS QPM?
     Route: 048
     Dates: start: 20111230, end: 20251127
  2. MYCOPHENOLATE MOFETIL [Suspect]
     Active Substance: MYCOPHENOLATE MOFETIL
     Indication: Renal transplant
     Dosage: 500 MG BID ORAL
     Route: 048
     Dates: start: 20111230, end: 20251127
  3. ATORVASTATIN [Concomitant]
     Active Substance: ATORVASTATIN
  4. BASAGLAR [Concomitant]
     Active Substance: INSULIN GLARGINE
  5. Dorzalamide 22.3mg-Timolol 6.8mglml Ophth Soln [Concomitant]
  6. Ferrous Sulfate 325 mg Tablet [Concomitant]
  7. INSULIN ASPART [Concomitant]
     Active Substance: INSULIN ASPART
  8. JARDIANCE [Concomitant]
     Active Substance: EMPAGLIFLOZIN
  9. Latanoprost 0.005% Ophth Soln [Concomitant]
  10. LOSARTAN [Concomitant]
     Active Substance: LOSARTAN
  11. Metoprolol ER Succ 100 mg Tablet [Concomitant]
  12. XARELTO [Concomitant]
     Active Substance: RIVAROXABAN

REACTIONS (1)
  - Death [None]

NARRATIVE: CASE EVENT DATE: 20251127
